FAERS Safety Report 5150814-8 (Version None)
Quarter: 2006Q4

REPORT INFORMATION
  Report Type: 
  Country: None (occurrence: None)
  Receive Date: 20061108
  Receipt Date: 20061026
  Transmission Date: 20070319
  Serious: No
  Sender: FDA-Public Use
  Company Number: 2006-148964-NL

PATIENT
  Age: 26 Year
  Sex: Female

DRUGS (1)
  1. ETONOGESTREL [Suspect]
     Indication: CONTRACEPTION
     Dosage: DF, SUBCUTANEOUS
     Route: 058
     Dates: start: 20040101, end: 20060301

REACTIONS (1)
  - DESMOID TUMOUR [None]
